FAERS Safety Report 9414728 (Version 1)
Quarter: 2013Q3

REPORT INFORMATION
  Report Type: Spontaneous
  Country: BR (occurrence: BR)
  Receive Date: 20130723
  Receipt Date: 20130723
  Transmission Date: 20140515
  Serious: Yes (Hospitalization, Other)
  Sender: FDA-Public Use
  Company Number: BR-ASTRAZENECA-2013SE52722

PATIENT
  Age: 824 Month
  Sex: Female
  Weight: 72 kg

DRUGS (7)
  1. CRESTOR [Suspect]
     Route: 048
  2. ASPIRINA PREVENT [Concomitant]
  3. GLIFAGE [Concomitant]
  4. DIOVAN [Concomitant]
  5. DAFORIN [Concomitant]
  6. INSULIN [Concomitant]
  7. UNSPECIFIED VITAMIN [Concomitant]

REACTIONS (2)
  - Venous occlusion [Recovered/Resolved]
  - Intra-abdominal haemorrhage [Recovered/Resolved]
